FAERS Safety Report 4766306-1 (Version None)
Quarter: 2005Q3

REPORT INFORMATION
  Report Type: 
  Country: None (occurrence: None)
  Receive Date: 20050906
  Receipt Date: 20050818
  Transmission Date: 20060218
  Serious: Yes (Hospitalization, Other)
  Sender: FDA-Public Use
  Company Number: USA040876043

PATIENT
  Age: 74 Year
  Sex: Female
  Weight: 91 kg

DRUGS (9)
  1. HUMALOG MIX 75/25 [Suspect]
     Indication: DIABETES MELLITUS
     Dosage: 28 U IN THE MORNING
     Dates: start: 20030101
  2. HUMULIN N [Suspect]
     Indication: DIABETES MELLITUS
     Dates: start: 20040101
  3. MYLANTA (CALCIUM CARBONATE) [Concomitant]
  4. TOPROL XL (METOPROL SUCCINATE) [Concomitant]
  5. NORVASC [Concomitant]
  6. AMBIEN [Concomitant]
  7. VAGIFEM [Concomitant]
  8. PREMARIN / 00073001/(ESTROGENS CONJUGATED) [Concomitant]
  9. PROVERA [Concomitant]

REACTIONS (11)
  - ABDOMINAL DISCOMFORT [None]
  - CHOLELITHIASIS [None]
  - COLONIC STENOSIS [None]
  - DRUG INEFFECTIVE [None]
  - ECZEMA [None]
  - FLUID RETENTION [None]
  - IRRITABLE BOWEL SYNDROME [None]
  - MALAISE [None]
  - PHARMACEUTICAL PRODUCT COMPLAINT [None]
  - POSTOPERATIVE HERNIA [None]
  - URTICARIA GENERALISED [None]
